FAERS Safety Report 5020487-3 (Version None)
Quarter: 2006Q2

REPORT INFORMATION
  Report Type: 
  Country: None (occurrence: None)
  Receive Date: 20060607
  Receipt Date: 20060530
  Transmission Date: 20061013
  Serious: Yes (Other)
  Sender: FDA-Public Use
  Company Number: GB-BRISTOL-MYERS SQUIBB COMPANY-13402599

PATIENT
  Age: 62 Year
  Sex: Female

DRUGS (2)
  1. ERBITUX [Suspect]
     Indication: COLORECTAL CANCER METASTATIC
     Dosage: 64.2857 MG.
     Route: 041
     Dates: start: 20050207, end: 20060512
  2. IRINOTECAN [Concomitant]
     Indication: COLORECTAL CANCER METASTATIC
     Route: 041
     Dates: start: 20050207, end: 20060424

REACTIONS (3)
  - BLOOD MAGNESIUM DECREASED [None]
  - MUSCLE SPASMS [None]
  - NEPHROPATHY [None]
